FAERS Safety Report 7288994-0 (Version None)
Quarter: 2011Q1

REPORT INFORMATION
  Report Type: 
  Country: None (occurrence: None)
  Receive Date: 20110211
  Receipt Date: 20110131
  Transmission Date: 20110831
  Serious: Yes (Hospitalization, Other)
  Sender: FDA-Public Use
  Company Number: PHHY2011CZ07058

PATIENT
  Sex: Female
  Weight: 47 kg

DRUGS (2)
  1. CHOLAGOL [Concomitant]
     Dosage: UNK
     Route: 048
     Dates: start: 20110110, end: 20110117
  2. DEGAN [Suspect]
     Indication: ABDOMINAL PAIN
     Dosage: 1 DF, QD
     Route: 048
     Dates: start: 20110118, end: 20110119

REACTIONS (3)
  - PAIN [None]
  - TORTICOLLIS [None]
  - TONIC CONVULSION [None]
